FAERS Safety Report 17526224 (Version 1)
Quarter: 2020Q1

REPORT INFORMATION
  Report Type: Spontaneous
  Country: US (occurrence: US)
  Receive Date: 20200311
  Receipt Date: 20200311
  Transmission Date: 20200409
  Serious: Yes (Hospitalization)
  Sender: FDA-Public Use
  Company Number: None

PATIENT
  Age: 75 Year
  Sex: Female

DRUGS (13)
  1. ONDANSETRON HCL [Concomitant]
     Active Substance: ONDANSETRON HYDROCHLORIDE
  2. OXYCODONE/ACETAMINOPHEN [Concomitant]
     Active Substance: ACETAMINOPHEN\OXYCODONE HYDROCHLORIDE
  3. BODULIF [Concomitant]
  4. LOPERAMIDE HYDROCHLORIDE. [Concomitant]
     Active Substance: LOPERAMIDE HYDROCHLORIDE
  5. GLIMEPRIDE [Concomitant]
     Active Substance: GLIMEPIRIDE
  6. DIPHENHYDRAIME HYDROCHLO [Concomitant]
  7. ESOMEPRAZOLE MAGNESIUM. [Concomitant]
     Active Substance: ESOMEPRAZOLE MAGNESIUM
  8. ZOLPIDEN [Concomitant]
     Active Substance: ZOLPIDEM TARTRATE
  9. JAKAFI [Suspect]
     Active Substance: RUXOLITINIB
  10. JAKAFI [Concomitant]
     Active Substance: RUXOLITINIB
     Dates: start: 20130917
  11. AMLODIPINE [Concomitant]
     Active Substance: AMLODIPINE BESYLATE
  12. LISNOPRIL [Concomitant]
  13. TEMAZEPAM. [Concomitant]
     Active Substance: TEMAZEPAM

REACTIONS (1)
  - Colonoscopy [None]

NARRATIVE: CASE EVENT DATE: 20200311
